FAERS Safety Report 8350422 (Version 2)
Quarter: 2012Q4

REPORT INFORMATION
  Report Type: 
  Country: US (occurrence: US)
  Receive Date: 20120124
  Receipt Date: 20120924
  Transmission Date: 20130627
  Serious: Yes (Hospitalization)
  Sender: FDA-Public Use
  Company Number: US-BAYER-2012-005024

PATIENT
  Age: 46 Year
  Sex: Female
  Weight: 58.96 kg

DRUGS (16)
  1. YAZ [Suspect]
     Indication: PREMENSTRUAL SYNDROME
     Dosage: UNK
     Dates: start: 200903, end: 20091130
  2. VICODIN [Concomitant]
  3. PROTONIX [Concomitant]
  4. GASTROGRAFIN [Concomitant]
  5. POTASSIUM CHLORIDE [Concomitant]
  6. NORMAL SALINE [Concomitant]
  7. IMITREX [Concomitant]
     Indication: MIGRAINE
     Dosage: Unk; as needed
     Dates: start: 2000
  8. TOPOMAX [Concomitant]
     Indication: MIGRAINE
     Dosage: UNK
     Dates: start: 1990
  9. HYDROCODONE [Concomitant]
     Dosage: UNK
     Dates: start: 2000
  10. KLONOPIN [Concomitant]
     Dosage: UNK; As needed
  11. PRAMOXINE HYDROCHLORIDE [Concomitant]
     Dosage: UNK
     Dates: start: 20090907, end: 20091106
  12. SUMATRIPTAN [Concomitant]
     Dosage: UNK
     Dates: start: 20090710, end: 20091104
  13. ALPRAZOLAM [Concomitant]
     Dosage: UNK
     Dates: start: 20091104
  14. XANAX [Concomitant]
     Dosage: UNK
     Dates: end: 20091109
  15. LUNESTA [Concomitant]
     Dosage: 2 mg, UNK
     Dates: start: 20070404, end: 20091120
  16. LYRICA [Concomitant]
     Dosage: 75 mg, UNK
     Dates: end: 20091126

REACTIONS (8)
  - Deep vein thrombosis [None]
  - Thrombophlebitis superficial [None]
  - Pain [None]
  - Injury [None]
  - Emotional distress [None]
  - Oedema peripheral [None]
  - Pain in extremity [None]
  - Muscle spasms [None]
